FAERS Safety Report 12137402 (Version 2)
Quarter: 2016Q2

REPORT INFORMATION
  Report Type: Spontaneous
  Country: CN (occurrence: CN)
  Receive Date: 20160302
  Receipt Date: 20160406
  Transmission Date: 20160815
  Serious: Yes (Other)
  Sender: FDA-Public Use
  Company Number: CN-ASTELLAS-2016US007531

PATIENT
  Age: 83 Year
  Sex: Female

DRUGS (4)
  1. VESICARE [Suspect]
     Active Substance: SOLIFENACIN SUCCINATE
     Indication: POLLAKIURIA
     Dosage: 2.5 MG (DAILY DOSE), UNKNOWN FREQ.
     Route: 048
     Dates: start: 20160216, end: 20160325
  2. HARNAL [Suspect]
     Active Substance: TAMSULOSIN HYDROCHLORIDE
     Indication: DYSURIA
  3. HARNAL [Suspect]
     Active Substance: TAMSULOSIN HYDROCHLORIDE
     Indication: POLLAKIURIA
     Dosage: 0.2 MG, ONCE DAILY
     Route: 048
     Dates: start: 20160216
  4. VESICARE [Suspect]
     Active Substance: SOLIFENACIN SUCCINATE
     Indication: DYSURIA

REACTIONS (6)
  - Haematochezia [Unknown]
  - Intentional product misuse [Recovered/Resolved]
  - Off label use [Not Recovered/Not Resolved]
  - Urinary retention [Unknown]
  - Rash [Unknown]
  - Drug ineffective [Not Recovered/Not Resolved]

NARRATIVE: CASE EVENT DATE: 20160216
